FAERS Safety Report 16822477 (Version 1)
Quarter: 2019Q3

REPORT INFORMATION
  Report Type: Report from Study
  Country: US (occurrence: US)
  Receive Date: 20190918
  Receipt Date: 20190918
  Transmission Date: 20191005
  Serious: Yes (Death, Life-Threatening, Other)
  Sender: FDA-Public Use
  Company Number: US-RECRO GAINESVILLE LLC-REPH-2019-000194

PATIENT
  Age: 31 Year
  Sex: Male
  Weight: 96 kg

DRUGS (1)
  1. VERAPAMIL HYDROCHLORIDE SUSTAINED RELEASE [Suspect]
     Active Substance: VERAPAMIL HYDROCHLORIDE
     Dosage: 100, 80 MILLIGRAM TABLETS, ONE TIME DOSE
     Route: 048

REACTIONS (7)
  - Pallor [Not Recovered/Not Resolved]
  - Intentional overdose [Fatal]
  - Generalised tonic-clonic seizure [Not Recovered/Not Resolved]
  - Loss of consciousness [Not Recovered/Not Resolved]
  - Blood pressure immeasurable [Not Recovered/Not Resolved]
  - Atrioventricular block second degree [Not Recovered/Not Resolved]
  - Hyperhidrosis [Not Recovered/Not Resolved]
